FAERS Safety Report 22362891 (Version 1)
Quarter: 2023Q2

REPORT INFORMATION
  Report Type: Spontaneous
  Country: US (occurrence: US)
  Receive Date: 20230525
  Receipt Date: 20230525
  Transmission Date: 20230721
  Serious: No
  Sender: FDA-Public Use
  Company Number: US-UCBSA-2022043815

PATIENT
  Sex: Female

DRUGS (8)
  1. CIMZIA [Suspect]
     Active Substance: CERTOLIZUMAB PEGOL
     Indication: Hidradenitis
     Dosage: UNKNOWN DOSE
  2. CIMZIA [Suspect]
     Active Substance: CERTOLIZUMAB PEGOL
     Indication: Off label use
  3. ADALIMUMAB [Concomitant]
     Active Substance: ADALIMUMAB
     Indication: Hidradenitis
     Dosage: UNKNOWN DOSE
  4. INFLIXIMAB [Concomitant]
     Active Substance: INFLIXIMAB
     Indication: Hidradenitis
     Dosage: UNKNOWN DOSE
  5. APREMILAST [Concomitant]
     Active Substance: APREMILAST
     Indication: Hidradenitis
     Dosage: UNKNOWN DOSE
  6. USTEKINUMAB [Concomitant]
     Active Substance: USTEKINUMAB
     Indication: Hidradenitis
     Dosage: UNKNOWN DOSE
  7. SPIRONOLACTONE [Concomitant]
     Active Substance: SPIRONOLACTONE
     Indication: Product used for unknown indication
     Dosage: UNKNOWN DOSE
  8. METFORMIN [Concomitant]
     Active Substance: METFORMIN HYDROCHLORIDE
     Indication: Product used for unknown indication
     Dosage: UNKNOWN DOSE

REACTIONS (2)
  - Treatment failure [Unknown]
  - Off label use [Unknown]
